FAERS Safety Report 7899631-6 (Version None)
Quarter: 2011Q4

REPORT INFORMATION
  Report Type: 
  Country: None (occurrence: None)
  Receive Date: 20111107
  Receipt Date: 20110916
  Transmission Date: 20120403
  Serious: Yes (Hospitalization)
  Sender: FDA-Public Use
  Company Number: US-AMGEN-USASP2011047913

PATIENT
  Age: 45 Year
  Sex: Female

DRUGS (1)
  1. ENBREL [Suspect]
     Indication: PSORIATIC ARTHROPATHY
     Dosage: 50 MG, QWK
     Dates: start: 20090630, end: 20110621

REACTIONS (5)
  - PSORIATIC ARTHROPATHY [None]
  - TOOTH IMPACTED [None]
  - TRIGEMINAL NEURALGIA [None]
  - OSTEOMYELITIS [None]
  - ENDODONTIC PROCEDURE [None]
